FAERS Safety Report 8335802-2 (Version None)
Quarter: 2012Q2

REPORT INFORMATION
  Report Type: 
  Country: None (occurrence: None)
  Receive Date: 20120504
  Receipt Date: 20090401
  Transmission Date: 20120825
  Serious: Yes (Hospitalization, Disabling)
  Sender: FDA-Public Use
  Company Number: US-BAYER-US-2007-009989

PATIENT
  Age: 32 Year
  Sex: Male
  Weight: 73 kg

DRUGS (58)
  1. BISACODYL [Concomitant]
     Dosage: 2 TAB(S), 1X/DAY [DAILY DOSE: 2 TAB(S)]
     Route: 048
  2. BACTROBAN [Concomitant]
     Dosage: UNK, 1X/DAY
     Route: 061
  3. DOLASETRON MESYLATE [Concomitant]
  4. COUMADIN [Concomitant]
  5. NEURONTIN [Concomitant]
  6. FLAGYL [Concomitant]
  7. REGLAN [Concomitant]
  8. DECADRON [Concomitant]
     Dosage: 4 MG EVERY 6 HR
     Route: 042
  9. MAGNEVIST [Suspect]
     Indication: NUCLEAR MAGNETIC RESONANCE IMAGING BRAIN
     Dosage: .1 MMOL/KG
     Route: 042
     Dates: start: 20031216, end: 20031216
  10. MAGNEVIST [Suspect]
     Indication: NUCLEAR MAGNETIC RESONANCE IMAGING
     Dosage: .1 MMOL/KG
     Route: 042
     Dates: start: 20040115, end: 20040115
  11. PROTONIX [Concomitant]
     Dosage: 40 MG, 1X/DAY
     Route: 048
  12. FERRLECIT [SODIUM FERRIGLUCONATE] [Concomitant]
     Indication: NEPHROGENIC ANAEMIA
     Dosage: UNK, UNK
     Route: 042
  13. EPOGEN [Concomitant]
  14. PRILOSEC [Concomitant]
  15. PHOSLO [Concomitant]
  16. LOVENOX [Concomitant]
  17. MAGNEVIST [Suspect]
     Dosage: 17 ML, 0.12 MMOL/KG
     Route: 042
     Dates: start: 20040706, end: 20040706
  18. PROHANCE [Suspect]
     Indication: NUCLEAR MAGNETIC RESONANCE IMAGING
  19. ZELNORM [Concomitant]
     Indication: NAUSEA
     Dosage: 6 MG, 2X/DAY
     Route: 048
  20. OXYCODONE HCL [Concomitant]
     Dosage: 20 MG, 2X/DAY
     Route: 048
  21. LORATADINE [Concomitant]
     Dosage: 10 MG, 1X/DAY
     Route: 048
  22. COUMADIN [Concomitant]
     Indication: DEEP VEIN THROMBOSIS
     Dosage: 6 MG, 1X/DAY
     Route: 048
  23. PAXIL [Concomitant]
  24. RENAGEL [Concomitant]
  25. DILAUDID [Concomitant]
  26. ANZEMET [Concomitant]
  27. ZOSYN [Concomitant]
  28. PSYLLIUM [Concomitant]
  29. TEGASEROD [Concomitant]
  30. OMNISCAN [Suspect]
     Indication: NUCLEAR MAGNETIC RESONANCE IMAGING
  31. SENNA ALEXANDRINA [Concomitant]
     Dosage: 2 TAB(S), 1X/DAY [DAILY DOSE: 2 TAB(S)]
     Route: 048
  32. OXYCONTIN [Concomitant]
  33. PROTONIX [Concomitant]
  34. MULTIHANCE [Suspect]
     Indication: NUCLEAR MAGNETIC RESONANCE IMAGING
  35. GABAPENTIN [Concomitant]
     Dosage: 300 MG, 1X/DAY
     Route: 048
  36. METHYLCELLULOSE [Concomitant]
     Dosage: 2 TAB(S), 2X/DAY [DAILY DOSE: 4 TAB(S)]
     Route: 048
  37. DULCOLAX [Concomitant]
     Dosage: 10 MG, AS REQ'D
     Route: 048
  38. NEPHROVITE [VIT C,VIT H,B5,B12,B9,B3,B6,B2,B1 HCL] [Concomitant]
  39. OXYCODONE HCL [Concomitant]
  40. MAGNEVIST [Suspect]
     Indication: NUCLEAR MAGNETIC RESONANCE IMAGING ABDOMINAL
     Dosage: .1 MMOL/KG
     Route: 042
     Dates: start: 20040225, end: 20040225
  41. TRAZODONE HCL [Concomitant]
     Dosage: 50 MG, 1X/DAY
     Route: 048
  42. PAROXETINE HCL [Concomitant]
     Dosage: 20 MG, 1X/DAY
     Route: 048
  43. CALCIUM ACETATE [Concomitant]
     Dosage: 1334 MG, 3X/DAY
     Route: 048
  44. COLACE [Concomitant]
  45. ERYTHROMYCIN [Concomitant]
  46. OPTIMARK [Suspect]
     Indication: NUCLEAR MAGNETIC RESONANCE IMAGING
  47. FOLIC ACID [Concomitant]
     Dosage: 1 MG, 1X/DAY
     Route: 048
  48. INSULIN [Concomitant]
  49. ACTIQ [Concomitant]
  50. HYDROMORPHONE HCL [Concomitant]
  51. NEPHRO-VITE RX [Concomitant]
     Dosage: 1 MG, 1X/DAY
     Route: 048
  52. DARBEPOETIN ALFA [Concomitant]
     Dosage: 40 ?G, 1X/WEEK
     Route: 058
  53. DOCUSATE SODIUM [Concomitant]
     Dosage: 100 MG, 3X/DAY
     Route: 048
  54. EPO [Concomitant]
  55. SENNA-MINT WAF [Concomitant]
  56. ARANESP [Concomitant]
  57. CITRUCEL [Concomitant]
  58. LUVOX [Concomitant]

REACTIONS (36)
  - APHASIA [None]
  - SKIN INDURATION [None]
  - ANHEDONIA [None]
  - TONGUE PARALYSIS [None]
  - SWELLING [None]
  - SKIN DISCOLOURATION [None]
  - EMOTIONAL DISTRESS [None]
  - APHAGIA [None]
  - TENDON DISORDER [None]
  - ANGER [None]
  - GENERAL PHYSICAL HEALTH DETERIORATION [None]
  - PAIN OF SKIN [None]
  - JOINT STIFFNESS [None]
  - MUSCLE TIGHTNESS [None]
  - ANXIETY [None]
  - MUSCULOSKELETAL STIFFNESS [None]
  - JOINT CONTRACTURE [None]
  - SELF ESTEEM DECREASED [None]
  - PARAESTHESIA [None]
  - OEDEMA [None]
  - SKIN FIBROSIS [None]
  - EXTREMITY CONTRACTURE [None]
  - URETHRAL STENOSIS [None]
  - URINARY TRACT OBSTRUCTION [None]
  - DEPRESSION [None]
  - NERVE COMPRESSION [None]
  - NEPHROGENIC SYSTEMIC FIBROSIS [None]
  - HYPOAESTHESIA [None]
  - ARTERIOVENOUS FISTULA THROMBOSIS [None]
  - FIBROSIS [None]
  - PAIN [None]
  - DYSKINESIA [None]
  - PROSTATIC DISORDER [None]
  - MOBILITY DECREASED [None]
  - JOINT RANGE OF MOTION DECREASED [None]
  - SCAR [None]
